FAERS Safety Report 5163499-1 (Version None)
Quarter: 2006Q4

REPORT INFORMATION
  Report Type: 
  Country: None (occurrence: None)
  Receive Date: 20061204
  Receipt Date: 20061121
  Transmission Date: 20070319
  Serious: Yes (Other)
  Sender: FDA-Public Use
  Company Number: NO-JNJFOC-20061104953

PATIENT
  Sex: Male

DRUGS (6)
  1. REMICADE [Suspect]
     Indication: PSORIATIC ARTHROPATHY
     Route: 042
  2. METHOTREXATE [Concomitant]
     Route: 048
  3. ALBYL-E [Concomitant]
     Route: 048
  4. OMEPRAZOLE [Concomitant]
     Route: 048
  5. LIPITOR [Concomitant]
     Route: 048
  6. SELO-ZOK [Concomitant]
     Route: 048

REACTIONS (2)
  - MARROW HYPERPLASIA [None]
  - POLYCYTHAEMIA VERA [None]
